FAERS Safety Report 13896912 (Version 1)
Quarter: 2017Q3

REPORT INFORMATION
  Report Type: Spontaneous
  Country: US (occurrence: US)
  Receive Date: 20170822
  Receipt Date: 20170822
  Transmission Date: 20171127
  Serious: Yes (Disabling)
  Sender: FDA-Public Use
  Company Number: None

PATIENT
  Sex: Female
  Weight: 76.5 kg

DRUGS (9)
  1. TRAMADOL. [Concomitant]
     Active Substance: TRAMADOL
  2. VITAMIN C [Concomitant]
     Active Substance: ASCORBIC ACID
  3. GABAPENTIN. [Suspect]
     Active Substance: GABAPENTIN
     Indication: NEURALGIA
     Route: 048
  4. KETONES [Concomitant]
  5. YAZ [Concomitant]
     Active Substance: DROSPIRENONE\ETHINYL ESTRADIOL
  6. PROBIOTICS [Concomitant]
     Active Substance: PROBIOTICS NOS
  7. VITAMIN E [Concomitant]
     Active Substance: .ALPHA.-TOCOPHEROL
  8. GABAPENTIN. [Suspect]
     Active Substance: GABAPENTIN
     Indication: PELVIC PAIN
     Route: 048
  9. RASPBERRY. [Concomitant]
     Active Substance: RASPBERRY

REACTIONS (12)
  - Impaired work ability [None]
  - Depression [None]
  - Memory impairment [None]
  - Disturbance in attention [None]
  - Confusional state [None]
  - Sluggishness [None]
  - Speech disorder [None]
  - Asthenia [None]
  - Hypersomnia [None]
  - Tremor [None]
  - Dizziness [None]
  - Vision blurred [None]

NARRATIVE: CASE EVENT DATE: 20160701
